FAERS Safety Report 6793137-3 (Version None)
Quarter: 2010Q2

REPORT INFORMATION
  Report Type: 
  Country: None (occurrence: None)
  Receive Date: 20100624
  Receipt Date: 20090601
  Transmission Date: 20101027
  Serious: Yes (Death)
  Sender: FDA-Public Use
  Company Number: US-MYLANLABS-2009S1009736

PATIENT
  Age: 64 Year
  Sex: Male

DRUGS (10)
  1. CLOZAPINE [Suspect]
     Route: 048
     Dates: end: 20090501
  2. SIMVASTATIN [Concomitant]
  3. KEPPRA [Concomitant]
  4. MIRALAX [Concomitant]
  5. LEVAQUIN [Concomitant]
  6. NOVOLOG [Concomitant]
  7. FOLIC ACID [Concomitant]
  8. FLUOXETINE HCL [Concomitant]
  9. OMEPRAZOLE [Concomitant]
  10. AMLODIPINE BESYLATE [Concomitant]

REACTIONS (1)
  - DEATH [None]
